FAERS Safety Report 14700758 (Version 1)
Quarter: 2018Q1

REPORT INFORMATION
  Report Type: Spontaneous
  Country: US (occurrence: US)
  Receive Date: 20180330
  Receipt Date: 20180330
  Transmission Date: 20180509
  Serious: No
  Sender: FDA-Public Use
  Company Number: US-IMPAX LABORATORIES, INC-2017-IPXL-01390

PATIENT
  Age: 65 Year
  Sex: Male
  Weight: 63 kg

DRUGS (1)
  1. ALENDRONATE SODIUM IR [Suspect]
     Active Substance: ALENDRONATE SODIUM
     Indication: BONE DISORDER
     Dosage: 70 MG, 1 /WEEK
     Route: 048
     Dates: start: 201603, end: 20170510

REACTIONS (2)
  - Ulcer [Not Recovered/Not Resolved]
  - Haematochezia [Unknown]

NARRATIVE: CASE EVENT DATE: 20170413
